FAERS Safety Report 13625684 (Version 2)
Quarter: 2017Q2

REPORT INFORMATION
  Report Type: Report from Study
  Country: US (occurrence: US)
  Receive Date: 20170608
  Receipt Date: 20170615
  Transmission Date: 20170830
  Serious: Yes (Other)
  Sender: FDA-Public Use
  Company Number: US-MALLINCKRODT-T201700774

PATIENT
  Sex: Female

DRUGS (3)
  1. REPOSITORY CORTICOTROPIN INJECTION [Suspect]
     Active Substance: CORTICOTROPIN
     Dosage: 40 UNITS / .5 ML, TWICE A WEEK
     Route: 058
     Dates: start: 20150803
  2. REPOSITORY CORTICOTROPIN INJECTION [Suspect]
     Active Substance: CORTICOTROPIN
     Indication: NEPHROTIC SYNDROME
     Dosage: 40 UNITS ONCE WEEK
     Route: 065
     Dates: start: 20170221
  3. REPOSITORY CORTICOTROPIN INJECTION [Suspect]
     Active Substance: CORTICOTROPIN
     Indication: PROTEINURIA
     Dosage: 40 UNITS / .5 ML, TWICE A WEEK
     Route: 058
     Dates: start: 20150803

REACTIONS (10)
  - Diabetes mellitus [Unknown]
  - Depressed mood [Not Recovered/Not Resolved]
  - Focal segmental glomerulosclerosis [Unknown]
  - Asthenia [Unknown]
  - Hypertension [Unknown]
  - Somnolence [Not Recovered/Not Resolved]
  - Feeling abnormal [Not Recovered/Not Resolved]
  - Headache [Not Recovered/Not Resolved]
  - Depression [Unknown]
  - Proteinuria [Not Recovered/Not Resolved]
